FAERS Safety Report 7076130-5 (Version None)
Quarter: 2010Q4

REPORT INFORMATION
  Report Type: 
  Country: None (occurrence: None)
  Receive Date: 20101021
  Receipt Date: 20101007
  Transmission Date: 20110411
  Serious: Yes (Hospitalization)
  Sender: FDA-Public Use
  Company Number: 2010MA003427

PATIENT
  Age: 46 Year
  Sex: Male

DRUGS (3)
  1. IBUPROFEN [Suspect]
     Dosage: 1200 MG; PO
     Route: 048
     Dates: start: 20080708, end: 20080709
  2. CELLCEPT [Concomitant]
  3. IBUPROFEN [Concomitant]

REACTIONS (4)
  - AGRANULOCYTOSIS [None]
  - BODY TEMPERATURE INCREASED [None]
  - HYPERBILIRUBINAEMIA [None]
  - PLATELET COUNT DECREASED [None]
